FAERS Safety Report 19349875 (Version 2)
Quarter: 2021Q3

REPORT INFORMATION
  Report Type: Report from Study
  Country: US (occurrence: US)
  Receive Date: 20210531
  Receipt Date: 20210707
  Transmission Date: 20211014
  Serious: Yes (Death, Life-Threatening, Hospitalization)
  Sender: FDA-Public Use
  Company Number: US-ROCHE-2768304

PATIENT
  Sex: Male

DRUGS (1)
  1. ATEZOLIZUMAB. [Suspect]
     Active Substance: ATEZOLIZUMAB
     Indication: OESOPHAGEAL CARCINOMA
     Dosage: SUBSEQUENT DOSE RECEIVED ON 19/NOV/2020, 03/DEC/2020, 17/DEC/2020, 31/DEC/2020, 14/JAN/2021 AND 10/F
     Route: 041
     Dates: start: 20201106

REACTIONS (4)
  - Disease progression [Fatal]
  - Back pain [Unknown]
  - Metastases to bone [Unknown]
  - Abdominal pain [Recovered/Resolved]

NARRATIVE: CASE EVENT DATE: 20210209
